FAERS Safety Report 8076626-3 (Version None)
Quarter: 2012Q1

REPORT INFORMATION
  Report Type: 
  Country: None (occurrence: None)
  Receive Date: 20120127
  Receipt Date: 20120120
  Transmission Date: 20120608
  Serious: Yes (Life-Threatening, Hospitalization)
  Sender: FDA-Public Use
  Company Number: US-BAYER-2011-093643

PATIENT
  Age: 27 Year
  Sex: Female
  Weight: 74.83 kg

DRUGS (1)
  1. YAZ [Suspect]
     Dosage: UNK
     Dates: start: 20080401, end: 20091101

REACTIONS (7)
  - THROMBOSIS [None]
  - GENERAL PHYSICAL HEALTH DETERIORATION [None]
  - ANXIETY [None]
  - ANHEDONIA [None]
  - PULMONARY EMBOLISM [None]
  - PAIN [None]
  - INJURY [None]
